FAERS Safety Report 5700205-3 (Version None)
Quarter: 2008Q2

REPORT INFORMATION
  Report Type: 
  Country: None (occurrence: None)
  Receive Date: 20080409
  Receipt Date: 20080401
  Transmission Date: 20081010
  Serious: No
  Sender: FDA-Public Use
  Company Number: US-JNJFOC-20080400819

PATIENT
  Age: 34 Year
  Sex: Male
  Weight: 108.86 kg

DRUGS (5)
  1. INVEGA [Suspect]
     Indication: SCHIZOPHRENIA, PARANOID TYPE
     Route: 048
  2. PROZAC [Concomitant]
     Indication: OBSESSIVE-COMPULSIVE DISORDER
     Route: 048
  3. KLONOPIN [Concomitant]
     Indication: ANXIETY
     Route: 048
  4. COLACE [Concomitant]
     Indication: ABNORMAL FAECES
     Route: 048
  5. AMANTADINE HCL [Concomitant]
     Indication: EXTRAPYRAMIDAL DISORDER
     Route: 048

REACTIONS (4)
  - EXTRAPYRAMIDAL DISORDER [None]
  - MUSCULOSKELETAL STIFFNESS [None]
  - PARKINSONISM [None]
  - TACHYCARDIA [None]
